FAERS Safety Report 9782004 (Version 1)
Quarter: 2013Q4

REPORT INFORMATION
  Report Type: Spontaneous
  Country: RU (occurrence: RU)
  Receive Date: 20131225
  Receipt Date: 20131225
  Transmission Date: 20140711
  Serious: Yes (Life-Threatening, Hospitalization)
  Sender: FDA-Public Use
  Company Number: PHHY2013RU149617

PATIENT
  Age: 58 Year
  Sex: Male

DRUGS (1)
  1. VOLTAREN [Suspect]
     Route: 054

REACTIONS (5)
  - Blood creatinine increased [Unknown]
  - Blood urea increased [Unknown]
  - Abdominal distension [Unknown]
  - Vomiting [Unknown]
  - Nausea [Unknown]
